FAERS Safety Report 24830131 (Version 6)
Quarter: 2025Q2

REPORT INFORMATION
  Report Type: Spontaneous
  Country: CA (occurrence: None)
  Receive Date: 20250110
  Receipt Date: 20250402
  Transmission Date: 20250716
  Serious: Yes (Death, Life-Threatening, Hospitalization, Disabling, Congenital Anomaly, Other)
  Sender: ORION
  Company Number: CA-HALEON-2218725

PATIENT
  Age: 40 Year
  Sex: Female
  Weight: 96 kg

DRUGS (191)
  1. METHOTREXATE [Suspect]
     Active Substance: METHOTREXATE
     Indication: Rheumatoid arthritis
  2. METHOTREXATE [Suspect]
     Active Substance: METHOTREXATE
  3. METHOTREXATE [Suspect]
     Active Substance: METHOTREXATE
  4. METHOTREXATE [Suspect]
     Active Substance: METHOTREXATE
  5. METHOTREXATE [Suspect]
     Active Substance: METHOTREXATE
  6. METHOTREXATE [Suspect]
     Active Substance: METHOTREXATE
  7. ADALIMUMAB [Suspect]
     Active Substance: ADALIMUMAB
     Indication: Rheumatoid arthritis
  8. ADALIMUMAB [Suspect]
     Active Substance: ADALIMUMAB
  9. ADALIMUMAB [Suspect]
     Active Substance: ADALIMUMAB
  10. ADALIMUMAB [Suspect]
     Active Substance: ADALIMUMAB
  11. ENBREL [Suspect]
     Active Substance: ETANERCEPT
     Indication: Rheumatoid arthritis
     Dosage: 50 MG, QW
  12. ENBREL [Suspect]
     Active Substance: ETANERCEPT
     Dosage: 10 MG, QW
  13. ENBREL [Suspect]
     Active Substance: ETANERCEPT
  14. HYDROCORTISONE [Suspect]
     Active Substance: HYDROCORTISONE
     Indication: Rheumatoid arthritis
  15. HYDROCORTISONE [Suspect]
     Active Substance: HYDROCORTISONE
  16. INFLIXIMAB [Suspect]
     Active Substance: INFLIXIMAB
     Indication: Rheumatoid arthritis
  17. METHYLPREDNISOLONE SODIUM SUCCINATE [Suspect]
     Active Substance: METHYLPREDNISOLONE SODIUM SUCCINATE
     Indication: Product used for unknown indication
  18. METHYLPREDNISOLONE SODIUM SUCCINATE [Suspect]
     Active Substance: METHYLPREDNISOLONE SODIUM SUCCINATE
  19. RITUXIMAB [Suspect]
     Active Substance: RITUXIMAB
     Indication: Rheumatoid arthritis
     Dosage: 2000 MG, QD
  20. RITUXIMAB [Suspect]
     Active Substance: RITUXIMAB
  21. RITUXIMAB [Suspect]
     Active Substance: RITUXIMAB
  22. RITUXIMAB [Suspect]
     Active Substance: RITUXIMAB
     Dosage: 2 MG, QD
  23. RITUXIMAB [Suspect]
     Active Substance: RITUXIMAB
  24. SULFASALAZINE [Suspect]
     Active Substance: SULFASALAZINE
     Indication: Rheumatoid arthritis
     Dosage: 2000 MG, QD
  25. SULFASALAZINE [Suspect]
     Active Substance: SULFASALAZINE
     Dosage: 4 MG, QD
  26. SULFASALAZINE [Suspect]
     Active Substance: SULFASALAZINE
     Dosage: 300 MG, QD
  27. SULFASALAZINE [Suspect]
     Active Substance: SULFASALAZINE
  28. SULFASALAZINE [Suspect]
     Active Substance: SULFASALAZINE
     Dosage: 1000 MG, QD
  29. SULFASALAZINE [Suspect]
     Active Substance: SULFASALAZINE
     Dosage: 2 G, QD
  30. XELJANZ [Suspect]
     Active Substance: TOFACITINIB CITRATE
     Indication: Rheumatoid arthritis
  31. XELJANZ [Suspect]
     Active Substance: TOFACITINIB CITRATE
     Dosage: 10 MG, QD
  32. XELJANZ [Suspect]
     Active Substance: TOFACITINIB CITRATE
     Dosage: 10 MG, QD
  33. XELJANZ [Suspect]
     Active Substance: TOFACITINIB CITRATE
     Dosage: 20 MG, QD
  34. AIMOVIG [Suspect]
     Active Substance: ERENUMAB-AOOE
     Indication: Migraine
  35. APREMILAST [Suspect]
     Active Substance: APREMILAST
     Indication: Rheumatoid arthritis
     Dosage: 6 MG, QD
  36. CANDESARTAN [Suspect]
     Active Substance: CANDESARTAN
     Indication: Migraine
  37. CANDESARTAN [Suspect]
     Active Substance: CANDESARTAN
  38. COSENTYX [Suspect]
     Active Substance: SECUKINUMAB
     Indication: Psoriatic arthropathy
  39. ERELZI [Suspect]
     Active Substance: ETANERCEPT-SZZS
     Indication: Rheumatoid arthritis
  40. METFORMIN [Suspect]
     Active Substance: METFORMIN HYDROCHLORIDE
     Indication: Product used for unknown indication
  41. TRIAMCINOLONE ACETONIDE [Suspect]
     Active Substance: TRIAMCINOLONE ACETONIDE
     Indication: Rheumatoid arthritis
  42. TUMS ULTRA [Suspect]
     Active Substance: CALCIUM CARBONATE
     Indication: Product used for unknown indication
  43. TUMS ULTRA [Suspect]
     Active Substance: CALCIUM CARBONATE
  44. ACETAMINOPHEN [Suspect]
     Active Substance: ACETAMINOPHEN
     Indication: Rheumatoid arthritis
  45. ACETAMINOPHEN [Suspect]
     Active Substance: ACETAMINOPHEN
  46. VITAMIN C [Suspect]
     Active Substance: ASCORBIC ACID
     Indication: Product used for unknown indication
  47. ACTEMRA [Suspect]
     Active Substance: TOCILIZUMAB
     Indication: Rheumatoid arthritis
  48. ACTEMRA [Suspect]
     Active Substance: TOCILIZUMAB
  49. ACTEMRA [Suspect]
     Active Substance: TOCILIZUMAB
  50. ACTEMRA [Suspect]
     Active Substance: TOCILIZUMAB
  51. ACTEMRA [Suspect]
     Active Substance: TOCILIZUMAB
  52. ACTEMRA [Suspect]
     Active Substance: TOCILIZUMAB
  53. ACTEMRA [Suspect]
     Active Substance: TOCILIZUMAB
  54. ACTEMRA [Suspect]
     Active Substance: TOCILIZUMAB
  55. ACTEMRA [Suspect]
     Active Substance: TOCILIZUMAB
  56. ACTEMRA [Suspect]
     Active Substance: TOCILIZUMAB
  57. ACTEMRA [Suspect]
     Active Substance: TOCILIZUMAB
  58. ACTEMRA [Suspect]
     Active Substance: TOCILIZUMAB
  59. ACTEMRA [Suspect]
     Active Substance: TOCILIZUMAB
  60. ACTEMRA [Suspect]
     Active Substance: TOCILIZUMAB
  61. ACTEMRA [Suspect]
     Active Substance: TOCILIZUMAB
  62. ACTEMRA [Suspect]
     Active Substance: TOCILIZUMAB
  63. ACTEMRA [Suspect]
     Active Substance: TOCILIZUMAB
  64. PREDNISONE [Suspect]
     Active Substance: PREDNISONE
     Indication: Rheumatoid arthritis
  65. PREDNISONE [Suspect]
     Active Substance: PREDNISONE
  66. PREDNISONE [Suspect]
     Active Substance: PREDNISONE
  67. PREDNISONE [Suspect]
     Active Substance: PREDNISONE
  68. PREDNISONE [Suspect]
     Active Substance: PREDNISONE
  69. PREDNISONE [Suspect]
     Active Substance: PREDNISONE
  70. PREDNISONE [Suspect]
     Active Substance: PREDNISONE
  71. PREDNISONE [Suspect]
     Active Substance: PREDNISONE
  72. PREDNISONE [Suspect]
     Active Substance: PREDNISONE
  73. PREDNISONE [Suspect]
     Active Substance: PREDNISONE
  74. PREDNISONE [Suspect]
     Active Substance: PREDNISONE
  75. ARAVA [Suspect]
     Active Substance: LEFLUNOMIDE
     Indication: Rheumatoid arthritis
  76. ARAVA [Suspect]
     Active Substance: LEFLUNOMIDE
  77. ARAVA [Suspect]
     Active Substance: LEFLUNOMIDE
  78. AZATHIOPRINE SODIUM [Suspect]
     Active Substance: AZATHIOPRINE SODIUM
     Indication: Product used for unknown indication
  79. ATOMOXETINE HYDROCHLORIDE [Suspect]
     Active Substance: ATOMOXETINE HYDROCHLORIDE
     Indication: Migraine
  80. BENFOTIAMINE [Suspect]
     Active Substance: BENFOTIAMINE
     Indication: Product used for unknown indication
  81. BERINERT [Suspect]
     Active Substance: HUMAN C1-ESTERASE INHIBITOR
     Indication: Product used for unknown indication
  82. BOTULINUM TOXIN TYPE A [Suspect]
     Active Substance: BOTULINUM TOXIN TYPE A
     Indication: Product used for unknown indication
  83. BUTRANS [Suspect]
     Active Substance: BUPRENORPHINE
     Indication: Product used for unknown indication
  84. CALCIUM ASCORBATE [Suspect]
     Active Substance: CALCIUM ASCORBATE
     Indication: Product used for unknown indication
  85. CALCIUM GLUBIONATE [Suspect]
     Active Substance: CALCIUM GLUBIONATE
     Indication: Product used for unknown indication
  86. CELEBREX [Suspect]
     Active Substance: CELECOXIB
     Indication: Product used for unknown indication
     Dosage: 2 DOSAGE FORM, QD
  87. CELEBREX [Suspect]
     Active Substance: CELECOXIB
     Dosage: 1 DOSAGE FORM, QD
  88. CIMZIA [Suspect]
     Active Substance: CERTOLIZUMAB PEGOL
     Indication: Rheumatoid arthritis
  89. CIMZIA [Suspect]
     Active Substance: CERTOLIZUMAB PEGOL
  90. CIMZIA [Suspect]
     Active Substance: CERTOLIZUMAB PEGOL
  91. CORTISONE ACETATE [Suspect]
     Active Substance: CORTISONE ACETATE
     Indication: Rheumatoid arthritis
  92. CORTISONE ACETATE [Suspect]
     Active Substance: CORTISONE ACETATE
  93. CORTISONE ACETATE [Suspect]
     Active Substance: CORTISONE ACETATE
  94. DESOXIMETASONE [Suspect]
     Active Substance: DESOXIMETASONE
     Indication: Rheumatoid arthritis
  95. DESOXIMETASONE [Suspect]
     Active Substance: DESOXIMETASONE
  96. DESOXIMETASONE [Suspect]
     Active Substance: DESOXIMETASONE
  97. DESOXIMETASONE [Suspect]
     Active Substance: DESOXIMETASONE
  98. DESOXIMETASONE [Suspect]
     Active Substance: DESOXIMETASONE
  99. DESOXIMETASONE [Suspect]
     Active Substance: DESOXIMETASONE
  100. DESOXIMETASONE [Suspect]
     Active Substance: DESOXIMETASONE
  101. DOMPERIDONE MALEATE [Suspect]
     Active Substance: DOMPERIDONE MALEATE
     Indication: Product used for unknown indication
  102. ERGOCALCIFEROL [Suspect]
     Active Substance: ERGOCALCIFEROL
     Indication: Product used for unknown indication
  103. FOLIC ACID [Suspect]
     Active Substance: FOLIC ACID
     Indication: Rheumatoid arthritis
  104. FOLIC ACID [Suspect]
     Active Substance: FOLIC ACID
  105. FOLIC ACID [Suspect]
     Active Substance: FOLIC ACID
  106. FOLIC ACID [Suspect]
     Active Substance: FOLIC ACID
  107. FOLIC ACID [Suspect]
     Active Substance: FOLIC ACID
  108. FOLIC ACID [Suspect]
     Active Substance: FOLIC ACID
  109. FOSAMAX [Suspect]
     Active Substance: ALENDRONATE SODIUM
     Indication: Rheumatoid arthritis
  110. FOSAMAX [Suspect]
     Active Substance: ALENDRONATE SODIUM
  111. GOLD SODIUM THIOMALATE [Suspect]
     Active Substance: GOLD SODIUM THIOMALATE
     Indication: Product used for unknown indication
  112. HUMIRA [Suspect]
     Active Substance: ADALIMUMAB
     Indication: Rheumatoid arthritis
  113. HUMIRA [Suspect]
     Active Substance: ADALIMUMAB
  114. HYDROXYCHLOROQUINE [Suspect]
     Active Substance: HYDROXYCHLOROQUINE
     Indication: Rheumatoid arthritis
     Dosage: 400 MG, QD
  115. HYDROXYCHLOROQUINE [Suspect]
     Active Substance: HYDROXYCHLOROQUINE
  116. HYDROXYCHLOROQUINE [Suspect]
     Active Substance: HYDROXYCHLOROQUINE
     Dosage: 40 MG, QD
  117. HYDROXYCHLOROQUINE [Suspect]
     Active Substance: HYDROXYCHLOROQUINE
  118. HYDROXYCHLOROQUINE [Suspect]
     Active Substance: HYDROXYCHLOROQUINE
  119. HYDROXYCHLOROQUINE [Suspect]
     Active Substance: HYDROXYCHLOROQUINE
  120. HYDROXYCHLOROQUINE [Suspect]
     Active Substance: HYDROXYCHLOROQUINE
  121. ISOPROPYL ALCOHOL [Suspect]
     Active Substance: ISOPROPYL ALCOHOL
     Indication: Product used for unknown indication
  122. LAMICTAL [Suspect]
     Active Substance: LAMOTRIGINE
     Indication: Product used for unknown indication
  123. LAMICTAL [Suspect]
     Active Substance: LAMOTRIGINE
  124. FLUMETHASONE PIVALATE [Suspect]
     Active Substance: FLUMETHASONE PIVALATE
     Indication: Product used for unknown indication
  125. MAGNESIUM CITRATE [Suspect]
     Active Substance: MAGNESIUM CITRATE
     Indication: Product used for unknown indication
  126. DIATRIZOATE MEGLUMINE [Suspect]
     Active Substance: DIATRIZOATE MEGLUMINE
     Indication: Product used for unknown indication
  127. MINOCYCLINE [Suspect]
     Active Substance: MINOCYCLINE HYDROCHLORIDE
     Indication: Rheumatoid arthritis
  128. MINOCYCLINE [Suspect]
     Active Substance: MINOCYCLINE HYDROCHLORIDE
  129. MYOCHRYSINE [Suspect]
     Active Substance: GOLD SODIUM THIOMALATE
     Indication: Rheumatoid arthritis
  130. MYRBETRIQ [Suspect]
     Active Substance: MIRABEGRON
     Indication: Product used for unknown indication
     Dosage: 1 DOSAGE FORM, QD
  131. MYRBETRIQ [Suspect]
     Active Substance: MIRABEGRON
  132. NAPROXEN [Suspect]
     Active Substance: NAPROXEN
     Indication: Rheumatoid arthritis
  133. NAPROXEN [Suspect]
     Active Substance: NAPROXEN
  134. NAPROXEN [Suspect]
     Active Substance: NAPROXEN
     Dosage: 500 MG, QD
  135. NEOMYCIN SULFATE [Suspect]
     Active Substance: NEOMYCIN SULFATE
     Indication: Rheumatoid arthritis
  136. NUCALA [Suspect]
     Active Substance: MEPOLIZUMAB
     Indication: Product used for unknown indication
  137. ORENCIA [Suspect]
     Active Substance: ABATACEPT
     Indication: Rheumatoid arthritis
  138. ORENCIA [Suspect]
     Active Substance: ABATACEPT
  139. ORENCIA [Suspect]
     Active Substance: ABATACEPT
     Dosage: 125 MG, QW
  140. ORENCIA [Suspect]
     Active Substance: ABATACEPT
  141. ORENCIA [Suspect]
     Active Substance: ABATACEPT
  142. ORENCIA [Suspect]
     Active Substance: ABATACEPT
  143. ORENCIA [Suspect]
     Active Substance: ABATACEPT
  144. ORENCIA [Suspect]
     Active Substance: ABATACEPT
  145. ORENCIA [Suspect]
     Active Substance: ABATACEPT
  146. OXYCODONE TEREPHTHALATE [Suspect]
     Active Substance: OXYCODONE TEREPHTHALATE
     Indication: Product used for unknown indication
  147. DICLOFENAC SODIUM [Suspect]
     Active Substance: DICLOFENAC SODIUM
     Indication: Product used for unknown indication
  148. POVIDONE-IODINE [Suspect]
     Active Substance: POVIDONE-IODINE
     Indication: Product used for unknown indication
  149. PERIOGARD [Suspect]
     Active Substance: CHLORHEXIDINE GLUCONATE
     Indication: Product used for unknown indication
  150. PHTHALYLSULFATHIAZOLE [Suspect]
     Active Substance: PHTHALYLSULFATHIAZOLE
     Indication: Rheumatoid arthritis
  151. PHTHALYLSULFATHIAZOLE [Suspect]
     Active Substance: PHTHALYLSULFATHIAZOLE
  152. PHTHALYLSULFATHIAZOLE [Suspect]
     Active Substance: PHTHALYLSULFATHIAZOLE
  153. PHTHALYLSULFATHIAZOLE [Suspect]
     Active Substance: PHTHALYLSULFATHIAZOLE
     Dosage: 2000 MG, QD
  154. RAMIPRIL [Suspect]
     Active Substance: RAMIPRIL
     Indication: Rheumatoid arthritis
  155. RAMIPRIL [Suspect]
     Active Substance: RAMIPRIL
  156. RAMIPRIL [Suspect]
     Active Substance: RAMIPRIL
  157. RANITIDINE [Suspect]
     Active Substance: RANITIDINE
     Indication: Product used for unknown indication
  158. CETIRIZINE HYDROCHLORIDE\PSEUDOEPHEDRINE HYDROCHLORIDE [Suspect]
     Active Substance: CETIRIZINE HYDROCHLORIDE\PSEUDOEPHEDRINE HYDROCHLORIDE
     Indication: Rheumatoid arthritis
  159. CETIRIZINE HYDROCHLORIDE\PSEUDOEPHEDRINE HYDROCHLORIDE [Suspect]
     Active Substance: CETIRIZINE HYDROCHLORIDE\PSEUDOEPHEDRINE HYDROCHLORIDE
  160. CETIRIZINE HYDROCHLORIDE\PSEUDOEPHEDRINE HYDROCHLORIDE [Suspect]
     Active Substance: CETIRIZINE HYDROCHLORIDE\PSEUDOEPHEDRINE HYDROCHLORIDE
  161. REMICADE [Suspect]
     Active Substance: INFLIXIMAB
     Indication: Rheumatoid arthritis
  162. REMICADE [Suspect]
     Active Substance: INFLIXIMAB
  163. REMICADE [Suspect]
     Active Substance: INFLIXIMAB
     Dosage: 500 MG, QD
  164. REMICADE [Suspect]
     Active Substance: INFLIXIMAB
  165. REMICADE [Suspect]
     Active Substance: INFLIXIMAB
  166. RIBOFLAVIN [Suspect]
     Active Substance: RIBOFLAVIN
     Indication: Product used for unknown indication
  167. SIMPONI [Suspect]
     Active Substance: GOLIMUMAB
     Indication: Rheumatoid arthritis
  168. SIMPONI [Suspect]
     Active Substance: GOLIMUMAB
     Indication: Prostatic specific antigen
  169. SIRUKUMAB [Suspect]
     Active Substance: SIRUKUMAB
     Indication: Product used for unknown indication
  170. TOPIRAMATE [Suspect]
     Active Substance: TOPIRAMATE
     Indication: Migraine
     Dosage: 25 MG, QD
  171. TOPIRAMATE [Suspect]
     Active Substance: TOPIRAMATE
     Dosage: 3 MG, QD
  172. SULFAMETHOXAZOLE [Suspect]
     Active Substance: SULFAMETHOXAZOLE
     Indication: Product used for unknown indication
  173. TRAMADOL HYDROCHLORIDE [Suspect]
     Active Substance: TRAMADOL HYDROCHLORIDE
     Indication: Product used for unknown indication
  174. RETINOL [Suspect]
     Active Substance: RETINOL
     Indication: Product used for unknown indication
  175. PSEUDOEPHEDRINE HYDROCHLORIDE [Suspect]
     Active Substance: PSEUDOEPHEDRINE HYDROCHLORIDE
     Indication: Rheumatoid arthritis
  176. PSEUDOEPHEDRINE HYDROCHLORIDE [Suspect]
     Active Substance: PSEUDOEPHEDRINE HYDROCHLORIDE
  177. PSEUDOEPHEDRINE HYDROCHLORIDE [Suspect]
     Active Substance: PSEUDOEPHEDRINE HYDROCHLORIDE
  178. ALENDRONATE SODIUM\CHOLECALCIFEROL [Suspect]
     Active Substance: ALENDRONATE SODIUM\CHOLECALCIFEROL
     Indication: Product used for unknown indication
  179. CALCIUM CARBONATE\CHOLECALCIFEROL [Suspect]
     Active Substance: CALCIUM CARBONATE\CHOLECALCIFEROL
     Indication: Product used for unknown indication
  180. MINOCYCLINE HYDROCHLORIDE [Suspect]
     Active Substance: MINOCYCLINE HYDROCHLORIDE
     Indication: Rheumatoid arthritis
  181. MINOCYCLINE HYDROCHLORIDE [Suspect]
     Active Substance: MINOCYCLINE HYDROCHLORIDE
  182. THIAMINE [Suspect]
     Active Substance: THIAMINE
     Indication: Product used for unknown indication
  183. TRUXIMA [Suspect]
     Active Substance: RITUXIMAB-ABBS
     Indication: Product used for unknown indication
  184. TRUXIMA [Suspect]
     Active Substance: RITUXIMAB-ABBS
  185. TRUXIMA [Suspect]
     Active Substance: RITUXIMAB-ABBS
  186. TRUXIMA [Suspect]
     Active Substance: RITUXIMAB-ABBS
  187. TRUXIMA [Suspect]
     Active Substance: RITUXIMAB-ABBS
  188. TRUXIMA [Suspect]
     Active Substance: RITUXIMAB-ABBS
  189. TRUXIMA [Suspect]
     Active Substance: RITUXIMAB-ABBS
  190. TRUXIMA [Suspect]
     Active Substance: RITUXIMAB-ABBS
  191. DESOGESTREL\ETHINYL ESTRADIOL [Concomitant]
     Active Substance: DESOGESTREL\ETHINYL ESTRADIOL

REACTIONS (29)
  - Overdose [Fatal]
  - Underdose [Fatal]
  - Intentional product use issue [Fatal]
  - Drug ineffective [Fatal]
  - Systemic lupus erythematosus [Fatal]
  - Type 2 diabetes mellitus [Fatal]
  - Pemphigus [Fatal]
  - Pericarditis [Fatal]
  - Psoriatic arthropathy [Fatal]
  - Rheumatic fever [Fatal]
  - Rheumatoid arthritis [Fatal]
  - Onychomadesis [Fatal]
  - Onychomycosis [Fatal]
  - Sleep disorder [Fatal]
  - Synovitis [Fatal]
  - Ill-defined disorder [Fatal]
  - Nausea [Fatal]
  - Confusional state [Fatal]
  - C-reactive protein increased [Fatal]
  - C-reactive protein abnormal [Fatal]
  - Drug hypersensitivity [Fatal]
  - Dyspnoea [Fatal]
  - Pain [Fatal]
  - Swelling [Fatal]
  - Rash [Fatal]
  - Wound [Fatal]
  - Contraindicated product administered [Fatal]
  - Inappropriate schedule of product administration [Unknown]
  - Product use issue [Unknown]
